FAERS Safety Report 5937126-7 (Version None)
Quarter: 2008Q4

REPORT INFORMATION
  Report Type: 
  Country: None (occurrence: None)
  Receive Date: 20081031
  Receipt Date: 20081028
  Transmission Date: 20090506
  Serious: Yes (Death, Hospitalization)
  Sender: FDA-Public Use
  Company Number: PHBS2008TW06147

PATIENT
  Age: 61 Year
  Sex: Male

DRUGS (1)
  1. CYCLOSPORINE [Suspect]
     Indication: HEART TRANSPLANT

REACTIONS (7)
  - BRONCHOPULMONARY ASPERGILLOSIS [None]
  - DEBRIDEMENT [None]
  - ENTEROBACTER INFECTION [None]
  - MEDIASTINITIS [None]
  - MULTI-ORGAN FAILURE [None]
  - SEPTIC SHOCK [None]
  - STERNOTOMY [None]
